FAERS Safety Report 11685989 (Version 1)
Quarter: 2015Q4

REPORT INFORMATION
  Report Type: Spontaneous
  Country: ZA (occurrence: ZA)
  Receive Date: 20151030
  Receipt Date: 20151030
  Transmission Date: 20160304
  Serious: Yes (Other)
  Sender: FDA-Public Use
  Company Number: ZA-SYMPLMED PHARMACEUTICALS-2015SYMPLMED000059

PATIENT

DRUGS (4)
  1. ATORVASTATIN CALCIUM. [Concomitant]
     Active Substance: ATORVASTATIN CALCIUM
     Indication: PRODUCT USED FOR UNKNOWN INDICATION
  2. PERINDOPRIL UNICORN [Suspect]
     Active Substance: PERINDOPRIL
     Dosage: 4 MG, QD
     Route: 048
     Dates: start: 201507, end: 201509
  3. PERINDOPRIL UNICORN [Suspect]
     Active Substance: PERINDOPRIL
     Indication: HYPERTENSION
     Dosage: 2 MG, QD
     Route: 048
     Dates: start: 201407, end: 201507
  4. ACETYLSALICYLIC ACID [Concomitant]
     Active Substance: ASPIRIN
     Indication: PRODUCT USED FOR UNKNOWN INDICATION

REACTIONS (5)
  - Bronchospasm [Recovered/Resolved]
  - Aortic valve disease [Unknown]
  - Cough [Recovered/Resolved]
  - Insomnia [Recovered/Resolved]
  - Hypertension [Recovered/Resolved]

NARRATIVE: CASE EVENT DATE: 2015
